FAERS Safety Report 7965361-5 (Version None)
Quarter: 2011Q4

REPORT INFORMATION
  Report Type: 
  Country: None (occurrence: None)
  Receive Date: 20111208
  Receipt Date: 20111201
  Transmission Date: 20120403
  Serious: Yes (Other)
  Sender: FDA-Public Use
  Company Number: GB-TEVA-311661ISR

PATIENT
  Age: 34 Year
  Sex: Female

DRUGS (3)
  1. HYOSCINE HYDROBROMIDE [Concomitant]
  2. ACETAMINOPHEN [Concomitant]
  3. RISPERIDONE [Suspect]
     Indication: PSYCHOTIC DISORDER
     Route: 048
     Dates: start: 20110822

REACTIONS (3)
  - FIBRIN D DIMER INCREASED [None]
  - BLOOD CREATINE PHOSPHOKINASE INCREASED [None]
  - ARTHRALGIA [None]
